FAERS Safety Report 6520648-8 (Version None)
Quarter: 2009Q4

REPORT INFORMATION
  Report Type: 
  Country: None (occurrence: None)
  Receive Date: 20091229
  Receipt Date: 20091210
  Transmission Date: 20100525
  Serious: Yes (Other)
  Sender: FDA-Public Use
  Company Number: JP-BAYER-200915021BYL

PATIENT
  Age: 30 Year
  Sex: Female

DRUGS (10)
  1. BETAFERON [Suspect]
     Indication: RELAPSING-REMITTING MULTIPLE SCLEROSIS
     Dosage: UNIT DOSE: 9.6 MIU
     Route: 058
     Dates: start: 20030320, end: 20030404
  2. BETAFERON [Suspect]
     Dosage: UNIT DOSE: 9.6 MIU
     Route: 058
     Dates: start: 20030405, end: 20030709
  3. BETAFERON [Suspect]
     Dosage: UNIT DOSE: 9.6 MIU
     Route: 058
     Dates: start: 20030710, end: 20040122
  4. IBRUPROFEN [Concomitant]
     Indication: PROPHYLAXIS
     Route: 048
     Dates: start: 20030320
  5. TIZANIDINE HCL [Concomitant]
     Indication: SPASTIC PARALYSIS
     Route: 048
     Dates: start: 19970327
  6. SEDIEL [Concomitant]
     Indication: INSOMNIA
     Route: 048
     Dates: start: 20011129, end: 20040724
  7. MARZULENE S [Concomitant]
     Indication: NAUSEA
     Route: 048
     Dates: start: 19970327
  8. MYSLEE [Concomitant]
     Indication: INSOMNIA
     Route: 048
     Dates: start: 20021203
  9. LAXOBERON [Concomitant]
     Indication: CONSTIPATION
     Route: 048
     Dates: start: 20010208
  10. LECICARBON [Concomitant]
     Indication: CONSTIPATION
     Route: 048
     Dates: start: 19980309

REACTIONS (4)
  - ARTHRALGIA [None]
  - LYMPHOCYTE COUNT DECREASED [None]
  - PYREXIA [None]
  - SJOGREN'S SYNDROME [None]
